FAERS Safety Report 11292430 (Version 3)
Quarter: 2015Q3

REPORT INFORMATION
  Report Type: Spontaneous
  Country: US (occurrence: US)
  Receive Date: 20150722
  Receipt Date: 20150901
  Transmission Date: 20151125
  Serious: Yes (Hospitalization, Other)
  Sender: FDA-Public Use
  Company Number: US-PFIZER INC-2015239879

PATIENT
  Age: 27 Year
  Sex: Female

DRUGS (2)
  1. DILANTIN [Suspect]
     Active Substance: PHENYTOIN
     Indication: EPILEPSY
     Dosage: 300 MG, DAILY, (3 X 100 MG/DAY), ^3X1 1/2 GRAIN DAILY^
     Dates: start: 1948, end: 1957
  2. PHENOBARBITAL. [Concomitant]
     Active Substance: PHENOBARBITAL
     Indication: EPILEPSY
     Dosage: 300 MG, DAILY, (3 X 100 MG/DAY) ^2-3X1 1/2 GRAIN^
     Dates: start: 1948

REACTIONS (4)
  - Status epilepticus [Unknown]
  - Seizure [Unknown]
  - Condition aggravated [Unknown]
  - Nervous system disorder [Unknown]

NARRATIVE: CASE EVENT DATE: 1955
